FAERS Safety Report 4952886-X (Version None)
Quarter: 2006Q1

REPORT INFORMATION
  Report Type: 
  Country: None (occurrence: None)
  Receive Date: 20060324
  Receipt Date: 20060316
  Transmission Date: 20060701
  Serious: Yes (Disabling)
  Sender: FDA-Public Use
  Company Number: JP-AVENTIS-200610893JP

PATIENT
  Age: 64 Year
  Sex: Male

DRUGS (4)
  1. LASIX [Suspect]
     Route: 041
     Dates: start: 20040701, end: 20040701
  2. UNKNOWN DRUG [Suspect]
     Dates: start: 20040701, end: 20040701
  3. UNKNOWN DRUG [Suspect]
     Dates: start: 20040701, end: 20040701
  4. UNKNOWN DRUG [Suspect]
     Dates: start: 20040701, end: 20040701

REACTIONS (1)
  - RENAL FAILURE [None]
